FAERS Safety Report 13506806 (Version 1)
Quarter: 2017Q2

REPORT INFORMATION
  Report Type: Spontaneous
  Country: OM (occurrence: OM)
  Receive Date: 20170502
  Receipt Date: 20170502
  Transmission Date: 20170830
  Serious: Yes (Other)
  Sender: FDA-Public Use
  Company Number: PHHY2017OM054362

PATIENT
  Age: 6 Month
  Sex: Female

DRUGS (4)
  1. FLUCONAZOL [Interacting]
     Active Substance: FLUCONAZOLE
     Indication: ASCITES
  2. FLUCONAZOL [Interacting]
     Active Substance: FLUCONAZOLE
     Indication: GENERALISED OEDEMA
     Route: 065
  3. HYDRALAZINE [Interacting]
     Active Substance: HYDRALAZINE HYDROCHLORIDE
     Indication: HYPERTENSION
     Dosage: 4 MG/KG, QD
     Route: 065
  4. AMLODIPINE [Suspect]
     Active Substance: AMLODIPINE BESYLATE
     Indication: HYPERTENSION
     Dosage: 5 MG, QD (0.4 MG/KG/DAY)
     Route: 065

REACTIONS (4)
  - Drug interaction [Unknown]
  - Ascites [Unknown]
  - Hypertension [Unknown]
  - Generalised oedema [Unknown]
